FAERS Safety Report 5914424-4 (Version None)
Quarter: 2008Q4

REPORT INFORMATION
  Report Type: 
  Country: None (occurrence: None)
  Receive Date: 20081009
  Receipt Date: 20081001
  Transmission Date: 20090506
  Serious: Yes (Life-Threatening, Hospitalization, Other)
  Sender: FDA-Public Use
  Company Number: BE-MERCK-0805BEL00006

PATIENT
  Age: 13 Year
  Sex: Female
  Weight: 42 kg

DRUGS (6)
  1. CANCIDAS [Suspect]
     Indication: PYREXIA
     Route: 041
     Dates: start: 20070716, end: 20070724
  2. CANCIDAS [Suspect]
     Indication: EVIDENCE BASED TREATMENT
     Route: 041
     Dates: start: 20070716, end: 20070724
  3. AMIKACIN [Concomitant]
     Indication: EVIDENCE BASED TREATMENT
     Route: 041
     Dates: start: 20070709, end: 20070717
  4. CEFTAZIDIME [Concomitant]
     Indication: EVIDENCE BASED TREATMENT
     Route: 042
     Dates: start: 20070709, end: 20070717
  5. VANCOMYCIN [Concomitant]
     Indication: EVIDENCE BASED TREATMENT
     Route: 041
     Dates: start: 20070709, end: 20070717
  6. MEROPENEM [Concomitant]
     Indication: ENTEROBACTER INFECTION
     Route: 041
     Dates: start: 20070717, end: 20070819

REACTIONS (10)
  - CARDIAC DISORDER [None]
  - CONVULSION [None]
  - DRUG INEFFECTIVE [None]
  - GENERAL PHYSICAL HEALTH DETERIORATION [None]
  - MYOCARDITIS MYCOTIC [None]
  - NEPHROPATHY TOXIC [None]
  - ORGAN TRANSPLANT [None]
  - PYREXIA [None]
  - RASH [None]
  - VOMITING [None]
